FAERS Safety Report 6876942-4 (Version None)
Quarter: 2010Q3

REPORT INFORMATION
  Report Type: 
  Country: None (occurrence: None)
  Receive Date: 20100727
  Receipt Date: 20100714
  Transmission Date: 20110219
  Serious: Yes (Hospitalization)
  Sender: FDA-Public Use
  Company Number: GB-ELI_LILLY_AND_COMPANY-GB201007003144

PATIENT
  Sex: Male

DRUGS (16)
  1. PEMETREXED [Suspect]
     Indication: NON-SMALL CELL LUNG CANCER
     Dosage: 500MG/M2 ON DAY ONE EVERY 21 DAYS
     Route: 042
     Dates: start: 20091113, end: 20100129
  2. CISPLATIN [Suspect]
     Indication: NON-SMALL CELL LUNG CANCER
     Dosage: 75 MG/M2, ON DAY 1 EVERY 21 DAYS
     Route: 042
     Dates: start: 20091113, end: 20100129
  3. PEMETREXED [Suspect]
     Dosage: UNK, ON DAY 1 EVERY 21 DAYS
     Route: 042
     Dates: start: 20100226
  4. FOLIC ACID [Concomitant]
     Indication: PROPHYLAXIS
     Dosage: UNK, UNKNOWN
     Dates: start: 20091030
  5. VITAMIN B-12 [Concomitant]
     Indication: PROPHYLAXIS
     Dosage: UNK, UNKNOWN
     Dates: start: 20091030
  6. DEXAMETHASONE [Concomitant]
     Indication: PROPHYLAXIS
     Dosage: UNK, UNKNOWN
     Dates: start: 20091113, end: 20100130
  7. BENDROFLUMETHIAZIDE [Concomitant]
     Dosage: UNK, UNKNOWN
     Dates: start: 20030721
  8. TAMSULOSIN HYDROCHLORIDE [Concomitant]
     Dosage: UNK, UNKNOWN
     Dates: start: 20060620
  9. FINASTERIDE [Concomitant]
     Dosage: UNK, UNKNOWN
     Dates: start: 20070320
  10. ASPIRIN [Concomitant]
     Indication: PROPHYLAXIS
     Dosage: UNK, UNKNOWN
     Dates: start: 20090826
  11. PARACETAMOL [Concomitant]
     Dosage: UNK, UNKNOWN
     Dates: start: 20090814
  12. METOCLOPRAMIDE [Concomitant]
     Dosage: UNK, UNKNOWN
     Dates: start: 20091209
  13. DICLOFENAC [Concomitant]
     Dosage: UNK, UNKNOWN
     Dates: start: 20100217
  14. LANSOPRAZOLE [Concomitant]
     Indication: PROPHYLAXIS
     Dosage: UNK, UNKNOWN
     Dates: start: 20100217
  15. ORAMORPH SR [Concomitant]
     Dosage: UNK, UNKNOWN
     Dates: start: 20100430
  16. MOVICOL /01625101/ [Concomitant]
     Dosage: UNK, UNKNOWN
     Dates: start: 20100430

REACTIONS (1)
  - ILIAC ARTERY THROMBOSIS [None]
